FAERS Safety Report 12535541 (Version 1)
Quarter: 2016Q3

REPORT INFORMATION
  Report Type: Spontaneous
  Country: US (occurrence: None)
  Receive Date: 20160706
  Receipt Date: 20160706
  Transmission Date: 20161109
  Serious: No
  Sender: FDA-Public Use
  Company Number: None

PATIENT
  Age: 72 Year
  Sex: Female

DRUGS (2)
  1. IBRANCE [Suspect]
     Active Substance: PALBOCICLIB
     Indication: DRUG THERAPY
     Dosage: 125MG QD X 21 DAYS PO
     Route: 048
     Dates: start: 20160225
  2. LETROZOLE. [Concomitant]
     Active Substance: LETROZOLE

REACTIONS (6)
  - Flatulence [None]
  - Asthenia [None]
  - Muscle spasms [None]
  - Diarrhoea haemorrhagic [None]
  - Presyncope [None]
  - Vomiting [None]

NARRATIVE: CASE EVENT DATE: 20160702
